FAERS Safety Report 15685328 (Version 12)
Quarter: 2024Q1

REPORT INFORMATION
  Report Type: Report from Study
  Country: CA (occurrence: CA)
  Receive Date: 20181204
  Receipt Date: 20240327
  Transmission Date: 20240410
  Serious: Yes (Other)
  Sender: FDA-Public Use
  Company Number: PHHY2014CA070042

PATIENT
  Age: 43 Year
  Sex: Male

DRUGS (41)
  1. XOLAIR [Suspect]
     Active Substance: OMALIZUMAB
     Indication: Chronic spontaneous urticaria
     Dosage: 300 MG, Q3W (EVERY 3 WEEKS)
     Route: 058
     Dates: start: 20140423
  2. XOLAIR [Suspect]
     Active Substance: OMALIZUMAB
     Indication: Asthma
     Dosage: UNK
     Route: 058
     Dates: start: 20140514
  3. XOLAIR [Suspect]
     Active Substance: OMALIZUMAB
     Dosage: 300 MG, Q4W (EVERY 4 WEEKS)
     Route: 058
     Dates: start: 20141103, end: 20150205
  4. XOLAIR [Suspect]
     Active Substance: OMALIZUMAB
     Dosage: 300 MG, BIW
     Route: 058
     Dates: start: 20180801
  5. XOLAIR [Suspect]
     Active Substance: OMALIZUMAB
     Dosage: 450 MG, Q4W (EVERY 4 WEEKS)
     Route: 058
  6. XOLAIR [Suspect]
     Active Substance: OMALIZUMAB
     Dosage: 300 MG, Q2W (EVERY 2 WEEKS)
     Route: 058
  7. XOLAIR [Suspect]
     Active Substance: OMALIZUMAB
     Dosage: UNK
     Route: 065
  8. XOLAIR [Suspect]
     Active Substance: OMALIZUMAB
     Dosage: 450 MG, QMO
     Route: 058
  9. XOLAIR [Suspect]
     Active Substance: OMALIZUMAB
     Dosage: 450 MG, QMO
     Route: 058
  10. OMALIZUMAB [Suspect]
     Active Substance: OMALIZUMAB
     Indication: Chronic spontaneous urticaria
     Dosage: 450 MG, QMO
     Route: 058
  11. OMALIZUMAB [Suspect]
     Active Substance: OMALIZUMAB
     Indication: Asthma
     Dosage: 450 MG
     Route: 058
  12. OMALIZUMAB [Suspect]
     Active Substance: OMALIZUMAB
     Dosage: 300 MG
     Route: 058
  13. OMALIZUMAB [Suspect]
     Active Substance: OMALIZUMAB
     Dosage: 300 MG
     Route: 058
  14. OMALIZUMAB [Suspect]
     Active Substance: OMALIZUMAB
     Dosage: 300 MG
     Route: 058
  15. OMALIZUMAB [Suspect]
     Active Substance: OMALIZUMAB
     Dosage: 300 MG, BIW
     Route: 058
  16. OMALIZUMAB [Suspect]
     Active Substance: OMALIZUMAB
     Dosage: 450 MG, QMO
     Route: 058
  17. OMALIZUMAB [Suspect]
     Active Substance: OMALIZUMAB
     Dosage: UNK
     Route: 058
  18. OMALIZUMAB [Suspect]
     Active Substance: OMALIZUMAB
     Dosage: 300 MG, 1 EVERY 4 WEEKS
     Route: 058
  19. OMALIZUMAB [Suspect]
     Active Substance: OMALIZUMAB
     Dosage: 450 MG, 1 EVERY 4 WEEKS
     Route: 058
  20. OMALIZUMAB [Suspect]
     Active Substance: OMALIZUMAB
     Dosage: 300 MG
     Route: 058
  21. OMALIZUMAB [Suspect]
     Active Substance: OMALIZUMAB
     Dosage: 300 MG
     Route: 058
  22. OMALIZUMAB [Suspect]
     Active Substance: OMALIZUMAB
     Dosage: 300 MG, 1 EVERY 2 WEEKS
     Route: 058
  23. OMALIZUMAB [Suspect]
     Active Substance: OMALIZUMAB
     Dosage: UNK
     Route: 058
  24. CYCLOSPORINE [Suspect]
     Active Substance: CYCLOSPORINE
     Indication: Nephrotic syndrome
     Dosage: UNK
     Route: 048
  25. CYCLOSPORINE [Suspect]
     Active Substance: CYCLOSPORINE
     Indication: Chronic spontaneous urticaria
  26. RUPATADINE FUMARATE [Concomitant]
     Active Substance: RUPATADINE FUMARATE
     Indication: Chronic spontaneous urticaria
     Dosage: 4 EVERY 1 DAYS
     Route: 048
  27. RUPATADINE FUMARATE [Concomitant]
     Active Substance: RUPATADINE FUMARATE
     Dosage: 4 EVERY 1 DAYS
     Route: 048
  28. RUPATADINE FUMARATE [Concomitant]
     Active Substance: RUPATADINE FUMARATE
     Dosage: UNK, QID
     Route: 048
     Dates: start: 201806
  29. SINGULAIR [Concomitant]
     Active Substance: MONTELUKAST SODIUM
     Indication: Chronic spontaneous urticaria
     Route: 065
  30. EPIPEN [Concomitant]
     Active Substance: EPINEPHRINE
     Indication: Product used for unknown indication
     Route: 065
  31. REACTINE [Concomitant]
     Indication: Chronic spontaneous urticaria
     Route: 065
  32. DAPSONE [Concomitant]
     Active Substance: DAPSONE
     Indication: Product used for unknown indication
     Route: 065
  33. CETIRIZINE [Concomitant]
     Active Substance: CETIRIZINE HYDROCHLORIDE
     Indication: Product used for unknown indication
     Route: 065
  34. SULFASALAZINE [Concomitant]
     Active Substance: SULFASALAZINE
     Indication: Product used for unknown indication
     Route: 065
  35. ATARAX [Concomitant]
     Active Substance: HYDROXYZINE HYDROCHLORIDE
     Indication: Product used for unknown indication
     Route: 065
  36. EBASTINE [Concomitant]
     Active Substance: EBASTINE
     Indication: Product used for unknown indication
     Route: 065
  37. ZANTAC [Concomitant]
     Active Substance: RANITIDINE HYDROCHLORIDE
     Indication: Chronic spontaneous urticaria
     Route: 065
  38. ZANTAC [Concomitant]
     Active Substance: RANITIDINE HYDROCHLORIDE
     Indication: Chronic spontaneous urticaria
  39. BENADRYL [Concomitant]
     Active Substance: DIPHENHYDRAMINE HYDROCHLORIDE
     Indication: Product used for unknown indication
     Route: 065
  40. RUPATADINE FUMARATE [Concomitant]
     Active Substance: RUPATADINE FUMARATE
     Indication: Chronic spontaneous urticaria
     Route: 065
  41. HYDROXYZINE [Concomitant]
     Active Substance: HYDROXYZINE HYDROCHLORIDE
     Indication: Product used for unknown indication
     Route: 065

REACTIONS (16)
  - Angioedema [Unknown]
  - Throat tightness [Unknown]
  - Swelling face [Unknown]
  - Lip swelling [Recovering/Resolving]
  - Pruritus [Recovering/Resolving]
  - Urticaria [Not Recovered/Not Resolved]
  - Kidney infection [Unknown]
  - Lupus nephritis [Unknown]
  - Insomnia [Unknown]
  - Anxiety [Unknown]
  - SARS-CoV-2 test positive [Unknown]
  - Wrong technique in product usage process [Unknown]
  - Product availability issue [Unknown]
  - Product use in unapproved indication [Unknown]
  - Product dose omission issue [Unknown]
  - Drug ineffective [Unknown]

NARRATIVE: CASE EVENT DATE: 20140101
